FAERS Safety Report 8275175-7 (Version None)
Quarter: 2012Q2

REPORT INFORMATION
  Report Type: 
  Country: None (occurrence: None)
  Receive Date: 20120411
  Receipt Date: 20120404
  Transmission Date: 20120825
  Serious: Yes (Hospitalization)
  Sender: FDA-Public Use
  Company Number: PHHY2012JP026760

PATIENT
  Age: 78 Year
  Sex: Female

DRUGS (5)
  1. VINCRISTINE [Suspect]
     Indication: DIFFUSE LARGE B-CELL LYMPHOMA
     Dosage: 2 MG, UNK
  2. DOXORUBICIN HCL [Suspect]
     Indication: DIFFUSE LARGE B-CELL LYMPHOMA
  3. RITUXIMAB [Suspect]
     Indication: DIFFUSE LARGE B-CELL LYMPHOMA
     Dosage: 375 MG/M2, UNK
  4. CYCLOPHOSPHAMIDE [Suspect]
     Indication: DIFFUSE LARGE B-CELL LYMPHOMA
     Dosage: 750 MG/M2, UNK
  5. PREDNISOLONE [Suspect]
     Indication: DIFFUSE LARGE B-CELL LYMPHOMA

REACTIONS (11)
  - FAECES DISCOLOURED [None]
  - FATIGUE [None]
  - HYPOVOLAEMIC SHOCK [None]
  - HAEMORRHAGE [None]
  - DECREASED APPETITE [None]
  - ABDOMINAL TENDERNESS [None]
  - DYSPHAGIA [None]
  - HYPOTENSION [None]
  - COLITIS ULCERATIVE [None]
  - ABDOMINAL DISCOMFORT [None]
  - MUCOSAL ULCERATION [None]
